FAERS Safety Report 25746021 (Version 1)
Quarter: 2025Q3

REPORT INFORMATION
  Report Type: Report from Study
  Country: KR (occurrence: KR)
  Receive Date: 20250901
  Receipt Date: 20250901
  Transmission Date: 20251020
  Serious: Yes (Hospitalization, Other)
  Sender: ASTELLAS
  Company Number: KR-ASTELLAS-2024US015124

PATIENT
  Age: 66 Year
  Sex: Male
  Weight: 64 kg

DRUGS (21)
  1. ENFORTUMAB VEDOTIN-EJFV [Suspect]
     Active Substance: ENFORTUMAB VEDOTIN-EJFV
     Indication: Transitional cell carcinoma metastatic
     Route: 042
     Dates: start: 20240215
  2. ENFORTUMAB VEDOTIN-EJFV [Suspect]
     Active Substance: ENFORTUMAB VEDOTIN-EJFV
     Route: 042
     Dates: start: 20240222
  3. ENFORTUMAB VEDOTIN-EJFV [Suspect]
     Active Substance: ENFORTUMAB VEDOTIN-EJFV
     Route: 042
     Dates: start: 20240307
  4. ENFORTUMAB VEDOTIN-EJFV [Suspect]
     Active Substance: ENFORTUMAB VEDOTIN-EJFV
     Route: 042
     Dates: start: 20240314
  5. ENFORTUMAB VEDOTIN-EJFV [Suspect]
     Active Substance: ENFORTUMAB VEDOTIN-EJFV
     Route: 042
     Dates: start: 20240322
  6. ENFORTUMAB VEDOTIN-EJFV [Suspect]
     Active Substance: ENFORTUMAB VEDOTIN-EJFV
     Route: 042
     Dates: start: 20240404, end: 20240404
  7. ENFORTUMAB VEDOTIN-EJFV [Suspect]
     Active Substance: ENFORTUMAB VEDOTIN-EJFV
     Route: 042
     Dates: start: 20240208
  8. CECOXIA [Concomitant]
     Indication: Osteoporosis
     Dosage: ONGOING
     Route: 048
     Dates: start: 20231127
  9. ENSITRA SEMI [Concomitant]
     Indication: Product used for unknown indication
     Dosage: ONGOING
     Route: 048
     Dates: start: 20240106
  10. VILDAGLIPTIN [Concomitant]
     Active Substance: VILDAGLIPTIN
     Indication: Diabetes mellitus
     Dosage: ONGOING
     Route: 048
     Dates: start: 20180424
  11. LIVALO [Concomitant]
     Active Substance: PITAVASTATIN CALCIUM
     Indication: Prophylaxis
     Dosage: ONGOING
     Route: 048
     Dates: start: 20221128
  12. ACTOS [Concomitant]
     Active Substance: PIOGLITAZONE HYDROCHLORIDE
     Indication: Diabetes mellitus
     Dosage: ONGOING
     Route: 048
     Dates: start: 20221128
  13. MAGNESIUM OXIDE [Concomitant]
     Active Substance: MAGNESIUM OXIDE
     Indication: Constipation
     Dosage: ONGOING
     Route: 048
     Dates: start: 20180424
  14. ERDOSTEINE [Concomitant]
     Active Substance: ERDOSTEINE
     Indication: Influenza like illness
     Dosage: ONGOING
     Route: 048
     Dates: start: 20231229
  15. ACETYLCYSTEINE [Concomitant]
     Active Substance: ACETYLCYSTEINE
     Indication: Influenza like illness
     Dosage: ONGOING
     Route: 048
     Dates: start: 20231226
  16. BIOFLOR [Concomitant]
     Indication: Constipation
     Dosage: 3 PACKS; 250 POWD; ONGOING
     Route: 048
     Dates: start: 20240111
  17. HERBALS [Concomitant]
     Active Substance: HERBALS
     Indication: Prophylaxis
     Dosage: ONGOING
     Route: 048
     Dates: start: 20240112
  18. CODAEWON S [Concomitant]
     Indication: Influenza like illness
     Dosage: ONGOING
     Route: 048
     Dates: start: 20221005
  19. EXFORGE [Concomitant]
     Active Substance: AMLODIPINE BESYLATE\VALSARTAN
     Indication: Hypertension
     Dosage: 5/80MG; ONGOING
     Route: 048
     Dates: start: 20180423
  20. LYRICA [Concomitant]
     Active Substance: PREGABALIN
     Indication: Prophylaxis
     Dosage: ONGOING
     Route: 048
     Dates: start: 20240118
  21. BACLOFEN [Concomitant]
     Active Substance: BACLOFEN
     Indication: Hiccups
     Dosage: ONGOING
     Route: 048
     Dates: start: 20240208

REACTIONS (6)
  - Asthenia [Recovering/Resolving]
  - Neuropathy peripheral [Not Recovered/Not Resolved]
  - Neuropathy peripheral [Recovering/Resolving]
  - Pruritus [Recovering/Resolving]
  - Conjunctivitis [Recovering/Resolving]
  - Asthenia [Not Recovered/Not Resolved]

NARRATIVE: CASE EVENT DATE: 20240222
